FAERS Safety Report 15953949 (Version 2)
Quarter: 2022Q4

REPORT INFORMATION
  Report Type: Spontaneous
  Country: CZ (occurrence: CZ)
  Receive Date: 20190213
  Receipt Date: 20221201
  Transmission Date: 20230112
  Serious: Yes (Other)
  Sender: FDA-Public Use
  Company Number: CZ-AUROBINDO-AUR-APL-2019-007158

PATIENT
  Age: 77 Year
  Sex: Male

DRUGS (7)
  1. METOPROLOL [Suspect]
     Active Substance: METOPROLOL
     Indication: Product used for unknown indication
     Dosage: UNK
     Route: 065
  2. METFORMIN [Suspect]
     Active Substance: METFORMIN HYDROCHLORIDE
     Indication: Type 2 diabetes mellitus
     Dosage: UNK
     Route: 065
  3. ASPIRIN [Suspect]
     Active Substance: ASPIRIN
     Indication: Product used for unknown indication
     Dosage: UNK
     Route: 065
  4. AMILORIDE [Suspect]
     Active Substance: AMILORIDE
     Indication: Product used for unknown indication
     Dosage: UNK
     Route: 065
  5. CHONDROITIN SULFATE (BOVINE) [Suspect]
     Active Substance: CHONDROITIN SULFATE (BOVINE)
     Indication: Spinal pain
     Dosage: UNK
     Route: 065
  6. HYDROCHLOROTHIAZIDE [Suspect]
     Active Substance: HYDROCHLOROTHIAZIDE
     Indication: Product used for unknown indication
     Dosage: UNK
     Route: 065
  7. NIMESULIDE [Suspect]
     Active Substance: NIMESULIDE
     Indication: Spinal pain
     Dosage: UNK
     Route: 065

REACTIONS (4)
  - Renal impairment [Recovering/Resolving]
  - Blood creatinine increased [Recovered/Resolved]
  - Tubulointerstitial nephritis [Recovering/Resolving]
  - Leukocyturia [Recovered/Resolved]
